FAERS Safety Report 8319947-9 (Version None)
Quarter: 2012Q2

REPORT INFORMATION
  Report Type: 
  Country: None (occurrence: None)
  Receive Date: 20120427
  Receipt Date: 20120417
  Transmission Date: 20120825
  Serious: Yes (Hospitalization)
  Sender: FDA-Public Use
  Company Number: JP-ROCHE-1058271

PATIENT
  Sex: Female
  Weight: 52 kg

DRUGS (9)
  1. TAMIFLU [Suspect]
     Route: 048
     Dates: start: 20120227, end: 20120227
  2. MUCODYNE [Concomitant]
     Indication: PRODUCTIVE COUGH
     Dosage: DOSAGE IS UNCERTAIN.
     Route: 048
     Dates: start: 20120224, end: 20120227
  3. ACETAMINOPHEN [Concomitant]
     Indication: PYREXIA
     Dosage: TAKEN AS NEEDED.
     Route: 048
     Dates: start: 20120226, end: 20120226
  4. SP [Concomitant]
     Dosage: DOSAGE IS UNCERTAIN.
     Route: 049
  5. ISODINE [Concomitant]
     Dosage: DOSAGE IS UNCERTAIN. GARGLE
     Route: 049
  6. TAMIFLU [Suspect]
     Indication: INFLUENZA
     Route: 048
     Dates: start: 20120225, end: 20120226
  7. TAMIFLU [Suspect]
     Route: 048
     Dates: start: 20120225, end: 20120226
  8. FAMOTIDINE [Concomitant]
     Indication: GASTRIC ULCER
     Route: 042
     Dates: start: 20120227, end: 20120303
  9. SUCRALFATE [Concomitant]
     Indication: GASTRIC ULCER
     Route: 048
     Dates: start: 20120227, end: 20120330

REACTIONS (2)
  - COAGULOPATHY [None]
  - HEPATIC FUNCTION ABNORMAL [None]
